FAERS Safety Report 5200295-0 (Version None)
Quarter: 2007Q1

REPORT INFORMATION
  Report Type: 
  Country: None (occurrence: None)
  Receive Date: 20070105
  Receipt Date: 20061227
  Transmission Date: 20070707
  Serious: Yes (Other)
  Sender: FDA-Public Use
  Company Number: US-PFIZER INC-2006135479

PATIENT
  Sex: Female
  Weight: 70.3 kg

DRUGS (3)
  1. CELEBREX [Suspect]
     Indication: ARTHRITIS
     Route: 048
     Dates: start: 20060101, end: 20061027
  2. VALIUM [Concomitant]
     Route: 048
  3. PROTONIX [Concomitant]
     Route: 048

REACTIONS (6)
  - LOSS OF CONSCIOUSNESS [None]
  - OEDEMA PERIPHERAL [None]
  - RASH ERYTHEMATOUS [None]
  - SWELLING FACE [None]
  - URTICARIA [None]
  - VISION BLURRED [None]
